FAERS Safety Report 4352204-4 (Version None)
Quarter: 2004Q2

REPORT INFORMATION
  Report Type: 
  Country: None (occurrence: None)
  Receive Date: 20040504
  Receipt Date: 20040422
  Transmission Date: 20050107
  Serious: Yes (Other)
  Sender: FDA-Public Use
  Company Number: PHNU2004DE01602

PATIENT
  Sex: Female

DRUGS (2)
  1. CLOZAPINE [Suspect]
     Indication: SCHIZOPHRENIA
     Route: 048
     Dates: start: 20040401
  2. SEROQUEL [Concomitant]
     Indication: SCHIZOPHRENIA
     Route: 048

REACTIONS (5)
  - BUNDLE BRANCH BLOCK RIGHT [None]
  - CONDUCTION DISORDER [None]
  - ECG SIGNS OF MYOCARDIAL ISCHAEMIA [None]
  - ELECTROCARDIOGRAM ABNORMAL [None]
  - ELECTROCARDIOGRAM T WAVE INVERSION [None]
